FAERS Safety Report 9243224 (Version 2)
Quarter: 2013Q2

REPORT INFORMATION
  Report Type: Spontaneous
  Country: IT (occurrence: IT)
  Receive Date: 20130419
  Receipt Date: 20130619
  Transmission Date: 20140414
  Serious: Yes (Hospitalization, Other)
  Sender: FDA-Public Use
  Company Number: CHPA2013IT006715

PATIENT
  Age: 74 Year
  Sex: Male

DRUGS (4)
  1. PURSENNID [Suspect]
     Indication: PREMEDICATION
     Dosage: 12 MG, UNK
     Route: 065
     Dates: start: 20040505, end: 20040505
  2. CEFALEXIN [Suspect]
     Indication: PROSTATITIS
     Dosage: UNK, UNK
     Dates: start: 20040502, end: 20040505
  3. GENTAMICIN [Suspect]
     Indication: PROSTATITIS
     Dosage: UNK, UNK
     Dates: start: 20040505, end: 20040505
  4. ALFUZOSINE [Concomitant]
     Dosage: UNK, UNK

REACTIONS (2)
  - Hypovolaemic shock [Recovered/Resolved]
  - Off label use [Unknown]
